FAERS Safety Report 6156736-8 (Version None)
Quarter: 2009Q2

REPORT INFORMATION
  Report Type: 
  Country: None (occurrence: None)
  Receive Date: 20090416
  Receipt Date: 20090409
  Transmission Date: 20091009
  Serious: Yes (Hospitalization)
  Sender: FDA-Public Use
  Company Number: JP-BAYER-200910786BYL

PATIENT
  Age: 80 Year
  Sex: Male
  Weight: 71 kg

DRUGS (16)
  1. ASPIRIN [Suspect]
     Indication: CEREBRAL INFARCTION
     Dosage: TOTAL DAILY DOSE: 100 MG  UNIT DOSE: 100 MG
     Route: 048
     Dates: start: 20020801, end: 20080609
  2. OPALMON [Suspect]
     Indication: DRUG USE FOR UNKNOWN INDICATION
     Dosage: TOTAL DAILY DOSE: 15 ?G  UNIT DOSE: 5 ?G
     Route: 048
     Dates: start: 20060620, end: 20080604
  3. FLUITRAN [Suspect]
     Indication: HYPERTENSION
     Dosage: TOTAL DAILY DOSE: 2 MG  UNIT DOSE: 2 MG
     Route: 048
     Dates: start: 20071009, end: 20080606
  4. MICARDIS [Suspect]
     Indication: DRUG USE FOR UNKNOWN INDICATION
     Dosage: TOTAL DAILY DOSE: 40 MG  UNIT DOSE: 40 MG
     Route: 048
     Dates: start: 20070313, end: 20080612
  5. ZANTAC [Suspect]
     Indication: DRUG USE FOR UNKNOWN INDICATION
     Dosage: TOTAL DAILY DOSE: 150 MG  UNIT DOSE: 150 MG
     Route: 048
     Dates: start: 20000703, end: 20080611
  6. LIPITOR [Suspect]
     Indication: HYPERLIPIDAEMIA
     Dosage: TOTAL DAILY DOSE: 10 MG  UNIT DOSE: 10 MG
     Route: 048
     Dates: start: 20050602, end: 20080611
  7. LIPLE [Suspect]
     Indication: LUMBAR SPINAL STENOSIS
     Route: 065
     Dates: start: 20070920, end: 20080401
  8. BUFFERIN [Concomitant]
     Indication: CEREBRAL INFARCTION
     Dosage: TOTAL DAILY DOSE: 81 MG  UNIT DOSE: 81 MG
     Route: 048
     Dates: start: 20000501, end: 20020801
  9. EUGLUCON [Concomitant]
     Indication: DIABETES MELLITUS
     Dosage: TOTAL DAILY DOSE: 2.5 MG  UNIT DOSE: 2.5 MG
     Route: 048
     Dates: start: 20000501
  10. RENIVACE [Concomitant]
     Indication: HYPERTENSION
     Dosage: TOTAL DAILY DOSE: 5 MG  UNIT DOSE: 5 MG
     Route: 048
     Dates: start: 20000501
  11. MAGNESIUM OXIDE [Concomitant]
     Indication: LARGE INTESTINE CARCINOMA
     Dosage: TOTAL DAILY DOSE: 1.5 G  UNIT DOSE: 0.5 G
     Route: 048
     Dates: start: 20000703
  12. LAC-B [Concomitant]
     Indication: LARGE INTESTINE CARCINOMA
     Dosage: TOTAL DAILY DOSE: 3 G
     Route: 048
     Dates: start: 20000703
  13. KELNAC [Concomitant]
     Indication: DRUG USE FOR UNKNOWN INDICATION
     Dosage: TOTAL DAILY DOSE: 240 MG  UNIT DOSE: 80 MG
     Route: 048
     Dates: start: 20000703
  14. CONIEL [Concomitant]
     Indication: HYPERTENSION
     Dosage: TOTAL DAILY DOSE: 4 MG  UNIT DOSE: 2 MG
     Route: 048
     Dates: start: 20020318
  15. TENORMIN [Concomitant]
     Indication: HYPERTENSION
     Dosage: TOTAL DAILY DOSE: 25 MG  UNIT DOSE: 25 MG
     Route: 048
     Dates: start: 20050714
  16. FLUOROURACIL [Concomitant]
     Indication: LARGE INTESTINE CARCINOMA
     Dosage: TOTAL DAILY DOSE: 150 MG  UNIT DOSE: 50 MG
     Route: 048

REACTIONS (1)
  - EOSINOPHILIA [None]
